FAERS Safety Report 17337041 (Version 13)
Quarter: 2022Q3

REPORT INFORMATION
  Report Type: Report from Study
  Country: DO (occurrence: DO)
  Receive Date: 20200129
  Receipt Date: 20220902
  Transmission Date: 20221027
  Serious: Yes (Life-Threatening, Hospitalization, Other)
  Sender: FDA-Public Use
  Company Number: NVSC2020DO017927

PATIENT
  Age: 48 Year
  Sex: Male
  Weight: 47.6 kg

DRUGS (7)
  1. SECUKINUMAB [Suspect]
     Active Substance: SECUKINUMAB
     Indication: Psoriatic arthropathy
     Dosage: 150 MG, QW
     Route: 058
     Dates: start: 20191018, end: 20191115
  2. SECUKINUMAB [Suspect]
     Active Substance: SECUKINUMAB
     Indication: Psoriasis
     Dosage: 300 MG, QMO
     Route: 058
     Dates: end: 201912
  3. SECUKINUMAB [Suspect]
     Active Substance: SECUKINUMAB
     Dosage: 300 MG, QMO
     Route: 058
  4. SECUKINUMAB [Suspect]
     Active Substance: SECUKINUMAB
     Dosage: 300 MG, QMO
     Route: 058
     Dates: start: 20211018, end: 20220726
  5. ALOMARON [Concomitant]
     Indication: Renal failure
     Dosage: 150 MG, QD (5 YEARS AGO APPROXIMATELY)
     Route: 048
  6. LASIX [Concomitant]
     Active Substance: FUROSEMIDE
     Indication: Renal failure
     Dosage: 40 UNK, QD(5 YEARS AGO APPROXIMATELY)
     Route: 048
  7. LOSARTAN [Concomitant]
     Active Substance: LOSARTAN
     Indication: Hypertension
     Dosage: 100 MG, QD (5 YEARS AGO APPROXIMATELY)
     Route: 048

REACTIONS (11)
  - Thrombocytopenia [Unknown]
  - Platelet count decreased [Not Recovered/Not Resolved]
  - Pseudomonas infection [Recovering/Resolving]
  - Ulcer [Unknown]
  - Pain [Recovering/Resolving]
  - Anaemia [Unknown]
  - Skin ulcer [Unknown]
  - Irritability [Unknown]
  - Eye allergy [Recovering/Resolving]
  - Eye pruritus [Unknown]
  - Inappropriate schedule of product administration [Unknown]

NARRATIVE: CASE EVENT DATE: 20200122
